FAERS Safety Report 10236641 (Version 1)
Quarter: 2014Q2

REPORT INFORMATION
  Report Type: Spontaneous
  Country: NL (occurrence: NL)
  Receive Date: 20140613
  Receipt Date: 20140613
  Transmission Date: 20141212
  Serious: Yes (Other)
  Sender: FDA-Public Use
  Company Number: PHHY2014NL070799

PATIENT
  Sex: Male

DRUGS (2)
  1. NITROFURANTOIN [Suspect]
  2. PROLUTON//HYDROXYPROGESTERONE [Suspect]

REACTIONS (5)
  - Premature baby [Unknown]
  - Low birth weight baby [Unknown]
  - Foetal distress syndrome [Unknown]
  - Foetal exposure during pregnancy [Unknown]
  - Caesarean section [None]
